FAERS Safety Report 8812327 (Version 2)
Quarter: 2012Q4

REPORT INFORMATION
  Report Type: 
  Country: US (occurrence: US)
  Receive Date: 20120927
  Receipt Date: 20121114
  Transmission Date: 20130627
  Serious: Yes (Other)
  Sender: FDA-Public Use
  Company Number: US-ASTRAZENECA-2012SE72966

PATIENT
  Age: 58 Year
  Sex: Male

DRUGS (2)
  1. NEXIUM [Suspect]
     Indication: DYSPEPSIA
     Dosage: DAILY
     Route: 048
  2. OTHER MEDICATION [Suspect]
     Indication: DYSPEPSIA

REACTIONS (5)
  - Cerebrovascular accident [Unknown]
  - Circulatory collapse [Unknown]
  - Hypoaesthesia [Unknown]
  - Dyspepsia [Unknown]
  - Drug ineffective [Unknown]
